FAERS Safety Report 7948636-5 (Version None)
Quarter: 2011Q4

REPORT INFORMATION
  Report Type: 
  Country: None (occurrence: None)
  Receive Date: 20111130
  Receipt Date: 20111116
  Transmission Date: 20120403
  Serious: Yes (Other)
  Sender: FDA-Public Use
  Company Number: US-BAYER-2011-089597

PATIENT
  Age: 27 Year
  Sex: Female
  Weight: 125.17 kg

DRUGS (3)
  1. LOVENOX [Concomitant]
     Indication: PULMONARY EMBOLISM
  2. MIRENA [Suspect]
     Indication: CONTRACEPTION
     Dosage: 20 MCG/24HR, CONT
     Route: 015
     Dates: start: 20080122, end: 20110915
  3. LOVENOX [Concomitant]
     Indication: DEEP VEIN THROMBOSIS

REACTIONS (3)
  - PREGNANCY WITH CONTRACEPTIVE DEVICE [None]
  - ADVERSE EVENT [None]
  - ABORTION SPONTANEOUS [None]
